FAERS Safety Report 17245554 (Version 1)
Quarter: 2020Q1

REPORT INFORMATION
  Report Type: Spontaneous
  Country: FR (occurrence: FR)
  Receive Date: 20200108
  Receipt Date: 20200108
  Transmission Date: 20200409
  Serious: Yes (Hospitalization)
  Sender: FDA-Public Use
  Company Number: FR-SUN PHARMACEUTICAL INDUSTRIES LTD-2019RR-232678

PATIENT
  Age: 55 Year
  Sex: Male

DRUGS (8)
  1. CELSENTRI [Suspect]
     Active Substance: MARAVIROC
     Indication: HIV INFECTION
     Dosage: ()
     Route: 048
     Dates: start: 20161011
  2. ISENTRESS [Suspect]
     Active Substance: RALTEGRAVIR POTASSIUM
     Indication: HIV INFECTION
     Dosage: 400 MILLIGRAMS, UNK
     Route: 048
     Dates: start: 20080905
  3. ATORVASTATINE [Suspect]
     Active Substance: ATORVASTATIN
     Indication: DYSLIPIDAEMIA
     Dosage: 40 MILLIGRAMS, UNK
     Route: 048
     Dates: start: 201908, end: 20191123
  4. NALTREXONE (CHLORHYDRATE DE) [Suspect]
     Active Substance: NALTREXONE
     Indication: EX-DRUG ABUSER
     Dosage: 50 MILLIGRAMS, UNK
     Route: 065
     Dates: start: 2018
  5. DARUNAVIR [Suspect]
     Active Substance: DARUNAVIR
     Indication: HIV INFECTION
     Dosage: 600 MILLIGRAMS, UNK
     Route: 048
     Dates: start: 20161011
  6. ENTECAVIR. [Suspect]
     Active Substance: ENTECAVIR
     Indication: HIV INFECTION
     Dosage: 0.5 MILLIGRAM, UNK
     Route: 048
     Dates: start: 20190902
  7. QUETIAPINE. [Suspect]
     Active Substance: QUETIAPINE
     Indication: MAJOR DEPRESSION
     Dosage: 50 MILLIGRAMS, UNK
     Route: 048
     Dates: start: 201711, end: 20191122
  8. RITONAVIR. [Suspect]
     Active Substance: RITONAVIR
     Indication: HIV INFECTION
     Dosage: 100 MILLIGRAMS, UNK
     Route: 048
     Dates: start: 20191011

REACTIONS (1)
  - Rhabdomyolysis [Recovering/Resolving]

NARRATIVE: CASE EVENT DATE: 201911
